FAERS Safety Report 9463506 (Version 1)
Quarter: 2013Q3

REPORT INFORMATION
  Report Type: Spontaneous
  Country: US (occurrence: US)
  Receive Date: 20130819
  Receipt Date: 20130819
  Transmission Date: 20140515
  Serious: Yes (Other)
  Sender: FDA-Public Use
  Company Number: US-AMGEN-USASP2013056482

PATIENT
  Age: 36 Year
  Sex: Female

DRUGS (7)
  1. XGEVA [Suspect]
     Indication: METASTASES TO BONE
     Dosage: 120 MG, UNK
     Route: 065
     Dates: start: 20110221
  2. HERCEPTIN [Concomitant]
  3. TAMOXIFEN [Concomitant]
  4. LAPATINIB [Concomitant]
  5. CALCIUM [Concomitant]
  6. CELEXA                             /00582602/ [Concomitant]
  7. FLEXERIL                           /00428402/ [Concomitant]

REACTIONS (1)
  - Osteonecrosis of jaw [Unknown]
